FAERS Safety Report 9189801 (Version 1)
Quarter: 2013Q1

REPORT INFORMATION
  Report Type: Spontaneous
  Country: BR (occurrence: BR)
  Receive Date: 20130326
  Receipt Date: 20130326
  Transmission Date: 20140127
  Serious: Yes (Death, Other)
  Sender: FDA-Public Use
  Company Number: PHHY2013BR029042

PATIENT
  Age: 73 Year
  Sex: Female

DRUGS (3)
  1. EXJADE [Suspect]
     Indication: MYELODYSPLASTIC SYNDROME
     Dosage: 2 AND A HALF
     Dates: start: 2011, end: 2011
  2. PURAN T4 [Concomitant]
  3. OMEPRAZOLE [Concomitant]

REACTIONS (2)
  - Death [Fatal]
  - Nephropathy toxic [Recovered/Resolved]
